FAERS Safety Report 9060899 (Version 3)
Quarter: 2013Q1

REPORT INFORMATION
  Report Type: Spontaneous
  Country: DE (occurrence: DE)
  Receive Date: 20130212
  Receipt Date: 20130326
  Transmission Date: 20140127
  Serious: Yes (Other)
  Sender: FDA-Public Use
  Company Number: DE-AMGEN-DEUSP2013008820

PATIENT
  Age: 71 Year
  Sex: Male
  Weight: 83 kg

DRUGS (5)
  1. ENBREL [Suspect]
     Indication: RHEUMATOID ARTHRITIS
     Dosage: UNK UNK, QD
     Route: 058
     Dates: start: 2003
  2. ENBREL [Suspect]
     Dosage: UNK
  3. MTX                                /00113802/ [Concomitant]
     Dosage: 20 MG, UNK
  4. CORTISONE [Concomitant]
     Dosage: 4 MG, UNK
  5. MORPHINE [Concomitant]
     Dosage: 25 MG, UNK

REACTIONS (3)
  - Rheumatoid arthritis [Recovered/Resolved]
  - Hyperthermia [Recovered/Resolved]
  - Erythema [Recovered/Resolved]
